FAERS Safety Report 12543532 (Version 1)
Quarter: 2016Q3

REPORT INFORMATION
  Report Type: Spontaneous
  Country: US (occurrence: None)
  Receive Date: 20160708
  Receipt Date: 20160708
  Transmission Date: 20161109
  Serious: No
  Sender: FDA-Public Use
  Company Number: None

PATIENT
  Age: 35 Year
  Sex: Female
  Weight: 127 kg

DRUGS (16)
  1. HYDRALAZINE [Concomitant]
     Active Substance: HYDRALAZINE HYDROCHLORIDE
  2. ASPIRIN. [Concomitant]
     Active Substance: ASPIRIN
  3. K-DUR [Concomitant]
     Active Substance: POTASSIUM CHLORIDE
  4. MAGNESIUM OXIDE. [Concomitant]
     Active Substance: MAGNESIUM OXIDE
  5. ZINC SULFATE [Concomitant]
     Active Substance: ZINC SULFATE\ZINC SULFATE ANHYDROUS
  6. LIPITOR [Concomitant]
     Active Substance: ATORVASTATIN CALCIUM
  7. FERROUS SULFATE. [Concomitant]
     Active Substance: FERROUS SULFATE
  8. INSULIN FLEXPEN [Concomitant]
  9. LASIX [Concomitant]
     Active Substance: FUROSEMIDE
  10. LOPRESSOR [Concomitant]
     Active Substance: METOPROLOL TARTRATE
  11. CLONIDINE. [Concomitant]
     Active Substance: CLONIDINE
  12. MERREM [Concomitant]
     Active Substance: MEROPENEM
  13. VANCOMYCIN, 750 MG [Suspect]
     Active Substance: VANCOMYCIN
     Dosage: 750 MG Q12H INTRAVENOUS (NOT OTHERWISE SPECIFIED)
     Route: 042
     Dates: start: 20160609, end: 20160614
  14. NORVASC [Concomitant]
     Active Substance: AMLODIPINE BESYLATE
  15. REGLAN [Concomitant]
     Active Substance: METOCLOPRAMIDE HYDROCHLORIDE
  16. DAKINS FULL [Concomitant]
     Active Substance: SODIUM HYPOCHLORITE

REACTIONS (1)
  - Pruritus generalised [None]

NARRATIVE: CASE EVENT DATE: 20160609
